FAERS Safety Report 21070567 (Version 2)
Quarter: 2022Q3

REPORT INFORMATION
  Report Type: Spontaneous
  Country: US (occurrence: None)
  Receive Date: 20220712
  Receipt Date: 20220725
  Transmission Date: 20221027
  Serious: Yes (Other)
  Sender: FDA-Public Use
  Company Number: US-FARMAPROD-202206-1069

PATIENT
  Sex: Female

DRUGS (35)
  1. OXERVATE [Suspect]
     Active Substance: CENEGERMIN-BKBJ
     Indication: Neurotrophic keratopathy
     Route: 047
     Dates: start: 20210422, end: 20210617
  2. OXERVATE [Suspect]
     Active Substance: CENEGERMIN-BKBJ
     Route: 047
     Dates: start: 20220520
  3. GABAPENTIN [Concomitant]
     Active Substance: GABAPENTIN
  4. GABAPENTIN [Concomitant]
     Active Substance: GABAPENTIN
  5. HYDROXYCHLOROQUINE SULFATE [Concomitant]
     Active Substance: HYDROXYCHLOROQUINE SULFATE
  6. VALACYCLOVIR [Concomitant]
     Active Substance: VALACYCLOVIR HYDROCHLORIDE
  7. NIFEDIPINE [Concomitant]
     Active Substance: NIFEDIPINE
  8. MONTELUKAST SODIUM [Concomitant]
     Active Substance: MONTELUKAST SODIUM
  9. AMBIEN [Concomitant]
     Active Substance: ZOLPIDEM TARTRATE
  10. DIAZEPAM [Concomitant]
     Active Substance: DIAZEPAM
  11. DIAZEPAM [Concomitant]
     Active Substance: DIAZEPAM
  12. IBANDRONATE SODIUM [Concomitant]
     Active Substance: IBANDRONATE SODIUM
  13. DULOXETINE HYDROCHLORIDE [Concomitant]
     Active Substance: DULOXETINE HYDROCHLORIDE
  14. PILOCARPINE [Concomitant]
     Active Substance: PILOCARPINE
  15. VITAMINS [Concomitant]
     Active Substance: VITAMINS
  16. VITAMIN C [Concomitant]
     Active Substance: ASCORBIC ACID
  17. MAGNESIUM [Concomitant]
     Active Substance: MAGNESIUM
  18. VITAMIN B-100 COMPLEX [Concomitant]
  19. POTASSIUM [Concomitant]
     Active Substance: POTASSIUM
  20. CALCIUM [Concomitant]
     Active Substance: CALCIUM
  21. GAMMAGARD LIQUID [Concomitant]
     Active Substance: HUMAN IMMUNOGLOBULIN G
  22. MINERALS\VITAMINS [Concomitant]
     Active Substance: MINERALS\VITAMINS
  23. PROBIOTIC + ACIDOPHILUS [Concomitant]
  24. KLOR-CON-EF [Concomitant]
  25. PRILOSEC OTC [Concomitant]
     Active Substance: OMEPRAZOLE MAGNESIUM
  26. MAGNESIUM OXIDE [Concomitant]
     Active Substance: MAGNESIUM OXIDE
  27. ERYTHROMYCIN [Concomitant]
     Active Substance: ERYTHROMYCIN
  28. PRED FORTE [Concomitant]
     Active Substance: PREDNISOLONE ACETATE
  29. LOTEPREDNOL ETABONATE [Concomitant]
     Active Substance: LOTEPREDNOL ETABONATE
  30. SYSTANE (HYPROMELLOSE 2910 (4000 MPA.S)) [Concomitant]
     Active Substance: HYPROMELLOSE 2910 (4000 MPA.S)
     Dosage: 0.3%-0.4%
  31. UNSPECIFIED INGREDIENT [Concomitant]
     Active Substance: UNSPECIFIED INGREDIENT
  32. MOXATAG [Concomitant]
     Active Substance: AMOXICILLIN
  33. CALCIUM [Concomitant]
     Active Substance: CALCIUM
     Dosage: 500(1250)
  34. DIAZEPAM [Concomitant]
     Active Substance: DIAZEPAM
  35. GABAPENTIN [Concomitant]
     Active Substance: GABAPENTIN

REACTIONS (6)
  - Pneumonia [Unknown]
  - Headache [Not Recovered/Not Resolved]
  - Product use complaint [Not Recovered/Not Resolved]
  - Eye pain [Unknown]
  - Photophobia [Not Recovered/Not Resolved]
  - Swelling of eyelid [Not Recovered/Not Resolved]
